FAERS Safety Report 8987267 (Version 1)
Quarter: 2012Q4

REPORT INFORMATION
  Report Type: 
  Country: DE (occurrence: DE)
  Receive Date: 20121226
  Receipt Date: 20121226
  Transmission Date: 20130627
  Serious: Yes (Other)
  Sender: FDA-Public Use
  Company Number: GXKR2012DE003849

PATIENT
  Sex: Male
  Weight: 77 kg

DRUGS (7)
  1. ASS [Suspect]
     Indication: CEREBROVASCULAR ACCIDENT PROPHYLAXIS
     Dosage: 100 mg, QD
     Route: 048
  2. RAMIPRIL [Concomitant]
     Route: 048
  3. TORASEMID [Concomitant]
     Route: 048
  4. SIMVASTATIN [Concomitant]
     Route: 048
  5. AMLODIPINE [Concomitant]
     Route: 048
  6. BISOPROLOL [Concomitant]
     Route: 048
  7. NITROLINGUAL-SPRAY [Concomitant]
     Route: 060

REACTIONS (5)
  - Embolism venous [Recovered/Resolved]
  - Pain in extremity [Recovered/Resolved]
  - Limb discomfort [Recovered/Resolved]
  - Muscular weakness [Recovered/Resolved]
  - Fall [Recovered/Resolved]
